FAERS Safety Report 23666951 (Version 2)
Quarter: 2024Q2

REPORT INFORMATION
  Report Type: Spontaneous
  Country: SI (occurrence: SI)
  Receive Date: 20240325
  Receipt Date: 20240413
  Transmission Date: 20240715
  Serious: Yes (Other)
  Sender: FDA-Public Use
  Company Number: SI-TEVA-VS-3173062

PATIENT
  Age: 32 Year
  Sex: Male

DRUGS (3)
  1. PALIPERIDONE [Suspect]
     Active Substance: PALIPERIDONE
     Indication: Schizoaffective disorder
     Dosage: LONG ACTING INJECTABLE; IN THE GLUTEAL REGION AS A SECOND INJECTION AFTER A 1 WEEK INTERVAL
     Route: 030
     Dates: start: 2021
  2. PALIPERIDONE [Suspect]
     Active Substance: PALIPERIDONE
     Indication: Schizoaffective disorder
     Dosage: AT MONTHLY OR 3-MONTHLY INTERVALS FOR A TOTAL OF 12 INJECTIONS
     Route: 065
     Dates: start: 2019
  3. RISPERIDONE [Concomitant]
     Active Substance: RISPERIDONE
     Indication: Schizoaffective disorder
     Route: 048
     Dates: start: 2021

REACTIONS (2)
  - Post-injection delirium sedation syndrome [Recovering/Resolving]
  - Treatment noncompliance [Unknown]

NARRATIVE: CASE EVENT DATE: 20210101
